FAERS Safety Report 5946919-1 (Version None)
Quarter: 2008Q4

REPORT INFORMATION
  Report Type: 
  Country: None (occurrence: None)
  Receive Date: 20081107
  Receipt Date: 20081107
  Transmission Date: 20090506
  Serious: Yes (Other)
  Sender: FDA-Public Use
  Company Number: None

PATIENT
  Age: 83 Year
  Sex: Male
  Weight: 61 kg

DRUGS (3)
  1. SEROQUEL [Suspect]
     Indication: PSYCHOTIC DISORDER
     Dosage: 200MG EVERY 8 HOURS PO
     Route: 048
     Dates: start: 20080710, end: 20080711
  2. . [Concomitant]
  3. SEROQUEL [Suspect]
     Indication: PSYCHOTIC DISORDER
     Dosage: 150 MG TWICE DAILY PO
     Route: 048
     Dates: start: 20080710, end: 20080712

REACTIONS (5)
  - HYPOTONIA [None]
  - INAPPROPRIATE SCHEDULE OF DRUG ADMINISTRATION [None]
  - MUSCLE RIGIDITY [None]
  - RESTLESS LEGS SYNDROME [None]
  - TREMOR [None]
